FAERS Safety Report 4649475-3 (Version None)
Quarter: 2005Q2

REPORT INFORMATION
  Report Type: 
  Country: None (occurrence: None)
  Receive Date: 20050427
  Receipt Date: 20050414
  Transmission Date: 20051028
  Serious: Yes (Death)
  Sender: FDA-Public Use
  Company Number: 2004106809

PATIENT
  Age: 24 Year
  Sex: Male

DRUGS (3)
  1. NEURONTIN [Suspect]
     Indication: BACK PAIN
     Dates: start: 20020701, end: 20021112
  2. MORPHINE [Suspect]
     Indication: PAIN
     Dosage: (3 IN 1 D)
     Dates: end: 20021112
  3. FENTANYL [Suspect]
     Indication: PAIN
     Dosage: 175 MG (1 IN 1 D), TRANSDERMAL
     Route: 062
     Dates: end: 20021112

REACTIONS (9)
  - APNOEA [None]
  - COMPLETED SUICIDE [None]
  - EUPHORIC MOOD [None]
  - FOAMING AT MOUTH [None]
  - LOSS OF CONSCIOUSNESS [None]
  - MENTAL DISORDER [None]
  - MOUTH HAEMORRHAGE [None]
  - MULTIPLE DRUG OVERDOSE [None]
  - POLYTRAUMATISM [None]
